FAERS Safety Report 25392088 (Version 1)
Quarter: 2025Q2

REPORT INFORMATION
  Report Type: Report from Study
  Country: IN (occurrence: IN)
  Receive Date: 20250603
  Receipt Date: 20250603
  Transmission Date: 20250717
  Serious: Yes (Other)
  Sender: MYLAN
  Company Number: IN-MYLANLABS-2025M1046733

PATIENT
  Age: 22 Year
  Sex: Male

DRUGS (11)
  1. METHOTREXATE [Suspect]
     Active Substance: METHOTREXATE
     Indication: Precursor T-lymphoblastic leukaemia acute
  2. FLUDARABINE [Suspect]
     Active Substance: FLUDARABINE PHOSPHATE
     Indication: Precursor T-lymphoblastic lymphoma/leukaemia refractory
     Dosage: 30 MILLIGRAM/SQ. METER, QD (ADMINISTERED UNDER FLAG REGIMEN; FROM DAYS 1 TO 5: IV INFUSION ADMINISTERED FOR 30 MINUTES)
  3. CYTARABINE [Suspect]
     Active Substance: CYTARABINE
     Indication: Precursor T-lymphoblastic leukaemia acute
  4. CYTARABINE [Suspect]
     Active Substance: CYTARABINE
     Indication: Precursor T-lymphoblastic lymphoma/leukaemia refractory
     Dosage: UNK, QD (~ADMINISTERED UNDER FLAG REGIMEN AT 2 G/M2 DAILY FOR FOUR HOURS)
  5. BORTEZOMIB [Suspect]
     Active Substance: BORTEZOMIB
     Indication: Precursor T-lymphoblastic lymphoma/leukaemia refractory
  6. DAUNORUBICIN [Suspect]
     Active Substance: DAUNORUBICIN
     Indication: Precursor T-lymphoblastic leukaemia acute
  7. VINCRISTINE [Suspect]
     Active Substance: VINCRISTINE
     Indication: Precursor T-lymphoblastic leukaemia acute
  8. ASPARAGINASE [Suspect]
     Active Substance: ASPARAGINASE
     Indication: Precursor T-lymphoblastic leukaemia acute
  9. PREDNISONE [Suspect]
     Active Substance: PREDNISONE
     Indication: Precursor T-lymphoblastic leukaemia acute
  10. CYCLOPHOSPHAMIDE [Suspect]
     Active Substance: CYCLOPHOSPHAMIDE
     Indication: Precursor T-lymphoblastic leukaemia acute
  11. MERCAPTOPURINE [Suspect]
     Active Substance: MERCAPTOPURINE
     Indication: Precursor T-lymphoblastic leukaemia acute

REACTIONS (3)
  - Febrile neutropenia [Recovered/Resolved]
  - Drug ineffective [Unknown]
  - Off label use [Unknown]
